FAERS Safety Report 19123999 (Version 1)
Quarter: 2021Q2

REPORT INFORMATION
  Report Type: Spontaneous
  Country: FR (occurrence: FR)
  Receive Date: 20210412
  Receipt Date: 20210412
  Transmission Date: 20210717
  Serious: Yes (Other)
  Sender: FDA-Public Use
  Company Number: NVSC2021FR080080

PATIENT
  Age: 21 Year
  Sex: Female
  Weight: 47 kg

DRUGS (2)
  1. CARBAMAZEPINE. [Suspect]
     Active Substance: CARBAMAZEPINE
     Indication: PRODUCT USED FOR UNKNOWN INDICATION
     Dosage: 200 MG
     Route: 065
  2. CARBAMAZEPINE. [Suspect]
     Active Substance: CARBAMAZEPINE
     Dosage: 600 MG
     Route: 065
     Dates: start: 202011

REACTIONS (17)
  - Inner ear disorder [Unknown]
  - Fatigue [Unknown]
  - Deafness [Unknown]
  - Presyncope [Unknown]
  - Galactorrhoea [Unknown]
  - Tinnitus [Unknown]
  - Arrhythmia [Unknown]
  - Breast mass [Unknown]
  - Insomnia [Unknown]
  - Intermenstrual bleeding [Unknown]
  - Decreased appetite [Unknown]
  - Blindness [Unknown]
  - Bradycardia [Unknown]
  - Dyspnoea [Unknown]
  - Anaemia [Unknown]
  - Anxiety [Unknown]
  - Headache [Unknown]
